FAERS Safety Report 23915578 (Version 6)
Quarter: 2024Q3

REPORT INFORMATION
  Report Type: Report from Study
  Country: CN (occurrence: CN)
  Receive Date: 20240529
  Receipt Date: 20240911
  Transmission Date: 20241016
  Serious: Yes (Hospitalization)
  Sender: VERITY PHARMACEUTICALS
  Company Number: CN-VER-202400009

PATIENT
  Age: 80 Year
  Sex: Male
  Weight: 63 kg

DRUGS (2)
  1. TRIPTORELIN [Suspect]
     Active Substance: TRIPTORELIN
     Indication: Prostate cancer
     Dosage: 22.5 MILLIGRAM(S), IN 6 MONTH, POWDER AND SOLVENT FOR SUSPENSION FOR INJECTION
     Route: 030
     Dates: start: 20231227, end: 20231227
  2. URAPIDIL HYDROCHLORIDE [Concomitant]
     Active Substance: URAPIDIL HYDROCHLORIDE
     Indication: Product used for unknown indication
     Dosage: 200 MILLIGRAM(S), INJECTION, FREQUENCY ST.
     Route: 042
     Dates: start: 20240508, end: 20240509

REACTIONS (1)
  - Abdominal hernia obstructive [Recovered/Resolved]

NARRATIVE: CASE EVENT DATE: 20240507
